FAERS Safety Report 25705492 (Version 1)
Quarter: 2025Q3

REPORT INFORMATION
  Report Type: Spontaneous
  Country: EU (occurrence: EU)
  Receive Date: 20250820
  Receipt Date: 20250820
  Transmission Date: 20251021
  Serious: Yes (Other)
  Sender: DR REDDYS
  Company Number: None

PATIENT
  Age: 42 Year
  Sex: Male

DRUGS (14)
  1. GABAPENTIN [Suspect]
     Active Substance: GABAPENTIN
     Indication: Drug abuse
     Route: 065
  2. BUPRENORPHINE [Suspect]
     Active Substance: BUPRENORPHINE
     Indication: Drug abuse
  3. PREGABALIN [Suspect]
     Active Substance: PREGABALIN
     Indication: Drug abuse
     Route: 065
  4. TENAMFETAMINE [Suspect]
     Active Substance: TENAMFETAMINE
     Indication: Drug abuse
  5. BENZOYLECGONINE [Suspect]
     Active Substance: BENZOYLECGONINE
     Indication: Drug abuse
  6. CLONAZEPAM [Suspect]
     Active Substance: CLONAZEPAM
     Indication: Drug abuse
     Route: 065
  7. COCAINE [Suspect]
     Active Substance: COCAINE
     Indication: Drug abuse
  8. DIAZEPAM [Suspect]
     Active Substance: DIAZEPAM
     Indication: Drug abuse
  9. ECGONINE METHYL ESTER [Suspect]
     Active Substance: ECGONINE METHYL ESTER
     Indication: Drug abuse
  10. LEVOMETHADONE [Suspect]
     Active Substance: LEVOMETHADONE
     Indication: Drug abuse
  11. MIDOMAFETAMINE [Suspect]
     Active Substance: MIDOMAFETAMINE
     Indication: Drug abuse
  12. NORDAZEPAM [Suspect]
     Active Substance: NORDAZEPAM
     Indication: Drug abuse
     Route: 065
  13. OXAZEPAM [Suspect]
     Active Substance: OXAZEPAM
     Indication: Drug abuse
     Route: 065
  14. TEMAZEPAM [Suspect]
     Active Substance: TEMAZEPAM
     Indication: Drug abuse
     Route: 065

REACTIONS (1)
  - Substance abuse [Unknown]
